FAERS Safety Report 21554574 (Version 1)
Quarter: 2022Q4

REPORT INFORMATION
  Report Type: Spontaneous
  Country: US (occurrence: US)
  Receive Date: 20221104
  Receipt Date: 20221104
  Transmission Date: 20230113
  Serious: Yes (Other)
  Sender: FDA-Public Use
  Company Number: US-PFIZER INC-202201265994

PATIENT
  Sex: Female

DRUGS (4)
  1. VANCOMYCIN HYDROCHLORIDE [Suspect]
     Active Substance: VANCOMYCIN HYDROCHLORIDE
     Indication: Central venous catheter removal
     Dosage: 1 G
     Route: 042
     Dates: start: 20220818, end: 20220821
  2. VANCOMYCIN HYDROCHLORIDE [Suspect]
     Active Substance: VANCOMYCIN HYDROCHLORIDE
     Indication: Sepsis
  3. TALAZOPARIB [Concomitant]
     Active Substance: TALAZOPARIB
     Indication: Neoplasm
     Dosage: 0.25 MG, 1X/DAY (DAYS 1-7 AND 15-21)
     Route: 048
     Dates: start: 20220714
  4. RP-3500 [Concomitant]
     Active Substance: RP-3500
     Indication: Neoplasm
     Dosage: 80 MG, 1X/DAY (DAYS 5-7 AND 19-21)
     Route: 048
     Dates: start: 20220714

REACTIONS (1)
  - Drug ineffective [Unknown]

NARRATIVE: CASE EVENT DATE: 20220819
